FAERS Safety Report 17830554 (Version 1)
Quarter: 2020Q2

REPORT INFORMATION
  Report Type: Report from Study
  Country: IE (occurrence: IE)
  Receive Date: 20200527
  Receipt Date: 20200527
  Transmission Date: 20200714
  Serious: Yes (Hospitalization, Other)
  Sender: FDA-Public Use
  Company Number: IE-AMGEN-IRLSL2020083069

PATIENT
  Age: 68 Year
  Sex: Female

DRUGS (6)
  1. EMEND [Concomitant]
     Active Substance: APREPITANT
     Dosage: 125 MILLIGRAM
     Route: 050
     Dates: start: 20200507, end: 202005
  2. NEULASTA [Suspect]
     Active Substance: PEGFILGRASTIM
     Indication: PRODUCT USED FOR UNKNOWN INDICATION
     Dosage: UNK (AS PER PRESCRIPTION)
     Route: 058
     Dates: start: 20200427
  3. MYCOSTATIN [Concomitant]
     Active Substance: NYSTATIN
     Dosage: 2 MILLIGRAM
     Route: 050
  4. DEXAMETHASONE. [Concomitant]
     Active Substance: DEXAMETHASONE
     Dosage: 2 MILLIGRAM
     Route: 050
  5. VALOID [CYCLIZINE LACTATE] [Concomitant]
     Dosage: 50 MILLIGRAM
     Route: 050
  6. TRAMADOL. [Concomitant]
     Active Substance: TRAMADOL
     Dosage: 50 MILLIGRAM
     Route: 050

REACTIONS (5)
  - Fatigue [Recovered/Resolved]
  - Headache [Recovered/Resolved]
  - Nausea [Recovered/Resolved]
  - Infection [Recovered/Resolved]
  - Bone pain [Recovered/Resolved]

NARRATIVE: CASE EVENT DATE: 20200501
